FAERS Safety Report 5401817-7 (Version None)
Quarter: 2007Q3

REPORT INFORMATION
  Report Type: 
  Country: None (occurrence: None)
  Receive Date: 20070731
  Receipt Date: 20070727
  Transmission Date: 20080115
  Serious: Yes (Other)
  Sender: FDA-Public Use
  Company Number: US-BRISTOL-MYERS SQUIBB COMPANY-13861273

PATIENT
  Age: 60 Month
  Sex: Female

DRUGS (9)
  1. METHOTREXATE [Suspect]
     Indication: RETINOBLASTOMA
  2. CYCLOPHOSPHAMIDE [Suspect]
     Indication: RETINOBLASTOMA
  3. IFOSFAMIDE [Suspect]
     Indication: RETINOBLASTOMA
  4. ETOPOSIDE [Suspect]
     Indication: RETINOBLASTOMA
  5. CISPLATIN [Suspect]
     Indication: RETINOBLASTOMA
  6. DOXORUBICIN HCL [Suspect]
     Indication: RETINOBLASTOMA
  7. TENIPOSIDE [Suspect]
     Indication: RETINOBLASTOMA
  8. VINCRISTINE [Suspect]
     Indication: RETINOBLASTOMA
  9. RADIATION THERAPY [Suspect]
     Indication: RETINOBLASTOMA

REACTIONS (1)
  - MYELOID LEUKAEMIA [None]
